FAERS Safety Report 14140502 (Version 1)
Quarter: 2017Q4

REPORT INFORMATION
  Report Type: Report from Study
  Country: JP (occurrence: JP)
  Receive Date: 20171030
  Receipt Date: 20171030
  Transmission Date: 20180321
  Serious: Yes (Hospitalization)
  Sender: FDA-Public Use
  Company Number: JP-ASTRAZENECA-2017SE26136

PATIENT
  Age: 25112 Day
  Sex: Male

DRUGS (21)
  1. MEDI4736 [Suspect]
     Active Substance: DURVALUMAB
     Indication: BLADDER TRANSITIONAL CELL CARCINOMA STAGE 0
     Route: 042
     Dates: start: 20160809, end: 20160809
  2. MEDI4736 [Suspect]
     Active Substance: DURVALUMAB
     Indication: BLADDER TRANSITIONAL CELL CARCINOMA STAGE 0
     Route: 042
     Dates: start: 20170124, end: 20170124
  3. OLOPATADINE HYDROCHLORIDE. [Concomitant]
     Active Substance: OLOPATADINE HYDROCHLORIDE
     Indication: DRUG ERUPTION
     Route: 048
     Dates: start: 20170222, end: 20170309
  4. LURICUL VG OINTMENT [Concomitant]
     Indication: PROPHYLAXIS
     Dosage: AS REQUIRED
     Route: 061
     Dates: start: 20160907
  5. MEDI4736 [Suspect]
     Active Substance: DURVALUMAB
     Indication: BLADDER TRANSITIONAL CELL CARCINOMA STAGE 0
     Route: 042
     Dates: start: 20160712, end: 20160712
  6. CALONAL [Concomitant]
     Active Substance: ACETAMINOPHEN
     Indication: BACK PAIN
     Dosage: 500.0MG AS REQUIRED
     Route: 048
  7. NIKORANMART [Concomitant]
     Active Substance: NICORANDIL
     Indication: ANGINA PECTORIS
     Route: 048
     Dates: start: 20160409, end: 20170612
  8. KALLIANT [Concomitant]
     Indication: HYPERTENSION
     Route: 048
     Dates: start: 20161005
  9. ARCRANE [Concomitant]
     Indication: PEPTIC ULCER
     Route: 048
     Dates: start: 20170301, end: 20170310
  10. MEDI4736 [Suspect]
     Active Substance: DURVALUMAB
     Indication: BLADDER TRANSITIONAL CELL CARCINOMA STAGE 0
     Route: 042
     Dates: start: 20161101, end: 20161101
  11. MEDI4736 [Suspect]
     Active Substance: DURVALUMAB
     Indication: BLADDER TRANSITIONAL CELL CARCINOMA STAGE 0
     Route: 042
     Dates: start: 20161129, end: 20161129
  12. KENACORT [Concomitant]
     Active Substance: TRIAMCINOLONE
     Indication: PROPHYLAXIS
     Dosage: 80.0MG ONCE/SINGLE ADMINISTRATION
     Route: 061
     Dates: start: 20170228, end: 20170228
  13. MEDI4736 [Suspect]
     Active Substance: DURVALUMAB
     Indication: BLADDER TRANSITIONAL CELL CARCINOMA STAGE 0
     Route: 042
     Dates: start: 20160906, end: 20160906
  14. MEDI4736 [Suspect]
     Active Substance: DURVALUMAB
     Indication: BLADDER TRANSITIONAL CELL CARCINOMA STAGE 0
     Route: 042
     Dates: start: 20161004, end: 20161004
  15. OLOPATADINE HYDROCHLORIDE. [Concomitant]
     Active Substance: OLOPATADINE HYDROCHLORIDE
     Indication: PROPHYLAXIS
     Route: 048
     Dates: start: 20170222, end: 20170309
  16. MEDI4736 [Suspect]
     Active Substance: DURVALUMAB
     Indication: BLADDER TRANSITIONAL CELL CARCINOMA STAGE 0
     Route: 042
     Dates: start: 20160419, end: 20160419
  17. SANCOBA [Concomitant]
     Active Substance: CYANOCOBALAMIN
     Indication: ASTHENOPIA
     Dosage: 8 DROP AS REQUIERED
     Route: 047
  18. PARIET [Concomitant]
     Active Substance: RABEPRAZOLE SODIUM
     Indication: OESOPHAGITIS
     Route: 048
     Dates: start: 20170304, end: 20170310
  19. MEDI4736 [Suspect]
     Active Substance: DURVALUMAB
     Indication: BLADDER TRANSITIONAL CELL CARCINOMA STAGE 0
     Route: 042
     Dates: start: 20160614, end: 20160614
  20. MEDI4736 [Suspect]
     Active Substance: DURVALUMAB
     Indication: BLADDER TRANSITIONAL CELL CARCINOMA STAGE 0
     Route: 042
     Dates: start: 20161227, end: 20161227
  21. MEDI4736 [Suspect]
     Active Substance: DURVALUMAB
     Indication: BLADDER TRANSITIONAL CELL CARCINOMA STAGE 0
     Route: 042
     Dates: start: 20160517, end: 20160517

REACTIONS (1)
  - Stevens-Johnson syndrome [Recovered/Resolved]

NARRATIVE: CASE EVENT DATE: 20170309
